FAERS Safety Report 9245065 (Version 1)
Quarter: 2013Q1

REPORT INFORMATION
  Report Type: Spontaneous
  Country: US (occurrence: None)
  Receive Date: 20121130
  Receipt Date: 20121130
  Transmission Date: 20140127
  Serious: Yes (Other)
  Sender: FDA-Public Use
  Company Number: US201208001294

PATIENT
  Sex: Female

DRUGS (2)
  1. BYDUREON [Suspect]
     Indication: DIABETES MELLITUS
     Dosage: (1/W)
     Route: 058
     Dates: end: 20120726
  2. BYETTA (EXENATIDE) PEN, DISPOSABLE [Suspect]
     Indication: DIABETES MELLITUS
     Route: 058

REACTIONS (1)
  - Pancreatitis [None]
